FAERS Safety Report 11583179 (Version 1)
Quarter: 2015Q4

REPORT INFORMATION
  Report Type: Spontaneous
  Country: US (occurrence: US)
  Receive Date: 20151001
  Receipt Date: 20151001
  Transmission Date: 20160304
  Serious: Yes (Other)
  Sender: FDA-Public Use
  Company Number: US-ROCHE-669100

PATIENT
  Age: 61 Year
  Sex: Male

DRUGS (5)
  1. CELEXA [Concomitant]
     Active Substance: CITALOPRAM HYDROBROMIDE
     Route: 065
  2. COPEGUS [Suspect]
     Active Substance: RIBAVIRIN
     Indication: HEPATITIS C
     Route: 048
  3. COPEGUS [Suspect]
     Active Substance: RIBAVIRIN
     Route: 048
  4. PEGASYS [Suspect]
     Active Substance: PEGINTERFERON ALFA-2A
     Indication: HEPATITIS C
     Dosage: PRE FILLED SYRINGE
     Route: 065
  5. COPEGUS [Suspect]
     Active Substance: RIBAVIRIN
     Route: 048

REACTIONS (20)
  - Diabetes mellitus [Unknown]
  - Blood urine present [Unknown]
  - Weight decreased [Not Recovered/Not Resolved]
  - Gingival pain [Not Recovered/Not Resolved]
  - Anaemia [Not Recovered/Not Resolved]
  - Neck pain [Unknown]
  - Foreign body sensation in eyes [Not Recovered/Not Resolved]
  - Dyspnoea exertional [Unknown]
  - Insomnia [Unknown]
  - Nausea [Not Recovered/Not Resolved]
  - Chest pain [Unknown]
  - Visual acuity reduced [Unknown]
  - Dry eye [Unknown]
  - Hyperhidrosis [Unknown]
  - Depression [Unknown]
  - Pyrexia [Unknown]
  - Decreased appetite [Not Recovered/Not Resolved]
  - Influenza like illness [Recovered/Resolved]
  - Fatigue [Not Recovered/Not Resolved]
  - Fall [Unknown]

NARRATIVE: CASE EVENT DATE: 20091114
